FAERS Safety Report 6148002-1 (Version None)
Quarter: 2009Q2

REPORT INFORMATION
  Report Type: 
  Country: None (occurrence: None)
  Receive Date: 20090408
  Receipt Date: 20090330
  Transmission Date: 20091009
  Serious: Yes (Hospitalization)
  Sender: FDA-Public Use
  Company Number: JP-ROCHE-617551

PATIENT
  Sex: Male
  Weight: 60 kg

DRUGS (8)
  1. KYTRIL [Suspect]
     Indication: PROPHYLAXIS OF NAUSEA AND VOMITING
     Dosage: DRUG REPORTED: KYTRIL 3 MG BAG (GRANISETRON), ROUTE: INTRAVENOUS NOS
     Route: 042
     Dates: start: 20081021, end: 20090210
  2. AVASTIN [Suspect]
     Indication: RECTAL CANCER METASTATIC
     Route: 041
     Dates: start: 20081021, end: 20090210
  3. FLUOROURACIL [Suspect]
     Indication: RECTAL CANCER METASTATIC
     Route: 041
     Dates: start: 20081021, end: 20090210
  4. LEVOFOLINATE [Concomitant]
     Dosage: DRUG REPORTED AS: LEVOFOLINATE CALCIUM
     Route: 041
  5. DECADRON [Suspect]
     Indication: DRUG USE FOR UNKNOWN INDICATION
     Dosage: ROUTE: INTRAVENOUS (NOS)
     Route: 042
     Dates: start: 20081021, end: 20090210
  6. HYPEN [Suspect]
     Indication: ABDOMINAL PAIN UPPER
     Route: 048
     Dates: start: 20090217, end: 20090222
  7. ISOVORIN [Suspect]
     Indication: RECTAL CANCER METASTATIC
     Route: 041
     Dates: start: 20081021, end: 20090210
  8. GASTROM [Suspect]
     Indication: ABDOMINAL DISCOMFORT
     Route: 048
     Dates: start: 20090113, end: 20090217

REACTIONS (1)
  - PERITONITIS [None]
